FAERS Safety Report 4334218-3 (Version None)
Quarter: 2004Q2

REPORT INFORMATION
  Report Type: 
  Country: None (occurrence: None)
  Receive Date: 20040402
  Receipt Date: 20040329
  Transmission Date: 20050107
  Serious: Yes (Other)
  Sender: FDA-Public Use
  Company Number: 2004206131DE

PATIENT
  Sex: Male

DRUGS (2)
  1. CAMPTOSAR [Suspect]
  2. ATROPINE [Concomitant]

REACTIONS (1)
  - MONOPLEGIA [None]
